FAERS Safety Report 9089284 (Version 1)
Quarter: 2013Q1

REPORT INFORMATION
  Report Type: Spontaneous
  Country: IT (occurrence: IT)
  Receive Date: 20130201
  Receipt Date: 20130201
  Transmission Date: 20140127
  Serious: Yes (Hospitalization)
  Sender: FDA-Public Use
  Company Number: IT-MERCK-1301ITA013623

PATIENT
  Age: 49 Year
  Sex: Male

DRUGS (1)
  1. PEGINTRON [Suspect]
     Indication: CHRONIC HEPATITIS C
     Dosage: 120 MICROGRAM, UNK
     Route: 058
     Dates: start: 20130118, end: 20130118

REACTIONS (2)
  - Hyperpyrexia [Recovered/Resolved]
  - Acute respiratory failure [Recovered/Resolved]
